FAERS Safety Report 15251088 (Version 2)
Quarter: 2020Q3

REPORT INFORMATION
  Report Type: Spontaneous
  Country: NO (occurrence: NO)
  Receive Date: 20180807
  Receipt Date: 20200721
  Transmission Date: 20201102
  Serious: Yes (Death, Life-Threatening, Other)
  Sender: FDA-Public Use
  Company Number: NO-PURACAP PHARMACEUTICAL LLC-2018EPC00361

PATIENT
  Age: 30 Year
  Sex: Male
  Weight: 50 kg

DRUGS (8)
  1. ACETAMINOPHEN AND CODEINE [Suspect]
     Active Substance: ACETAMINOPHEN\CODEINE PHOSPHATE
     Indication: ANALGESIC THERAPY
     Dosage: 10 DOSES OF 1 G, UNK
     Route: 065
  2. ACETAMINOPHEN AND CODEINE [Suspect]
     Active Substance: ACETAMINOPHEN\CODEINE PHOSPHATE
     Dosage: 9 DOSES OF 0.5 G IN COMBINATION WITH 30 MG CODEINE
     Route: 065
  3. RAMIPRIL. [Concomitant]
     Active Substance: RAMIPRIL
     Indication: DUCHENNE MUSCULAR DYSTROPHY
     Route: 065
  4. ACETAMINOPHEN AND CODEINE [Suspect]
     Active Substance: ACETAMINOPHEN\CODEINE PHOSPHATE
     Dosage: UNK
     Route: 048
  5. ACETAMINOPHEN AND CODEINE [Suspect]
     Active Substance: ACETAMINOPHEN\CODEINE PHOSPHATE
     Dosage: ALSO REPORTED: 3 G OF PARACETAMOL INTRAVENOUSLY (IV), ON DAY TWO 4 G ORALLY (PO), ON DAY THREE 2 G I
     Route: 042
  6. BISOPROLOL [Concomitant]
     Active Substance: BISOPROLOL
     Indication: DUCHENNE MUSCULAR DYSTROPHY
     Route: 065
  7. LACTULOSE. [Concomitant]
     Active Substance: LACTULOSE
     Indication: CONSTIPATION
     Route: 065
  8. ACETAMINOPHEN AND CODEINE [Suspect]
     Active Substance: ACETAMINOPHEN\CODEINE PHOSPHATE
     Dosage: 5 DOSES OF PARACETAMOL AS 1 G, UNK
     Route: 042

REACTIONS (4)
  - Respiratory failure [Not Recovered/Not Resolved]
  - Acute hepatic failure [Fatal]
  - Circulatory collapse [Not Recovered/Not Resolved]
  - Loss of consciousness [Not Recovered/Not Resolved]
